FAERS Safety Report 18138876 (Version 2)
Quarter: 2021Q4

REPORT INFORMATION
  Report Type: Other
  Country: GR (occurrence: None)
  Receive Date: 20200812
  Receipt Date: 20211117
  Transmission Date: 20220303
  Serious: Yes (Other)
  Sender: FDA-Public Use
  Company Number: GR-ROCHE-2655521

PATIENT
  Age: 73 Year
  Sex: Female

DRUGS (10)
  1. POLATUZUMAB VEDOTIN [Suspect]
     Active Substance: POLATUZUMAB VEDOTIN
     Indication: Diffuse large B-cell lymphoma refractory
     Dosage: 5 CYCLES
     Route: 042
     Dates: start: 201911, end: 20200213
  2. RITUXIMAB [Suspect]
     Active Substance: RITUXIMAB
     Indication: Diffuse large B-cell lymphoma refractory
     Route: 042
     Dates: start: 201911
  3. BENDAMUSTINE [Suspect]
     Active Substance: BENDAMUSTINE
     Indication: Diffuse large B-cell lymphoma refractory
     Route: 042
     Dates: start: 201911
  4. CYCLOPHOSPHAMIDE [Concomitant]
     Active Substance: CYCLOPHOSPHAMIDE
     Route: 065
  5. DOXORUBICIN [Concomitant]
     Active Substance: DOXORUBICIN
     Route: 065
  6. VINCRISTINE [Concomitant]
     Active Substance: VINCRISTINE
     Route: 065
  7. PREDNISONE [Concomitant]
     Active Substance: PREDNISONE
     Route: 065
  8. GEMCITABINE [Concomitant]
     Active Substance: GEMCITABINE
     Route: 065
  9. CISPLATIN [Concomitant]
     Active Substance: CISPLATIN
     Route: 065
  10. DEXAMETHASONE [Concomitant]
     Active Substance: DEXAMETHASONE
     Route: 065

REACTIONS (4)
  - Stomatitis [Unknown]
  - Peripheral sensory neuropathy [Unknown]
  - Neuropathy peripheral [Unknown]
  - Disease recurrence [Unknown]

NARRATIVE: CASE EVENT DATE: 20200101
